FAERS Safety Report 18740210 (Version 4)
Quarter: 2021Q1

REPORT INFORMATION
  Report Type: Report from Study
  Country: AR (occurrence: AR)
  Receive Date: 20210114
  Receipt Date: 20210315
  Transmission Date: 20210419
  Serious: Yes (Other)
  Sender: FDA-Public Use
  Company Number: US-TAKEDA-2021TUS002208

PATIENT
  Sex: Female
  Weight: 68 kg

DRUGS (1)
  1. VELAGLUCERASE ALFA [Suspect]
     Active Substance: VELAGLUCERASE ALFA
     Dosage: 60 MILLIGRAM PER KILOGRAM, Q2WEEKS
     Route: 050
     Dates: start: 20071210

REACTIONS (3)
  - Osteolysis [Not Recovered/Not Resolved]
  - Limb injury [Recovering/Resolving]
  - Wound [Recovering/Resolving]
